FAERS Safety Report 9541996 (Version 1)
Quarter: 2013Q3

REPORT INFORMATION
  Report Type: Spontaneous
  Country: GR (occurrence: GR)
  Receive Date: 20130923
  Receipt Date: 20130923
  Transmission Date: 20140515
  Serious: Yes (Death, Hospitalization, Other)
  Sender: FDA-Public Use
  Company Number: GR-MPIJNJ-2013JNJ000316

PATIENT
  Sex: 0

DRUGS (8)
  1. VELCADE [Suspect]
     Indication: PLASMA CELL MYELOMA
     Dosage: 1.3 MG/M2, UNK
     Route: 058
     Dates: start: 20130821, end: 20130827
  2. DEXAMETHASONE [Concomitant]
     Indication: PLASMA CELL MYELOMA
     Dosage: 20 MG, UNK
     Route: 048
     Dates: start: 20130821, end: 20130827
  3. VALTREX [Concomitant]
     Indication: PROPHYLAXIS
     Dosage: UNK
     Dates: start: 20130807
  4. BACTRIMEL [Concomitant]
     Indication: PROPHYLAXIS
     Dosage: UNK
     Dates: start: 20130807
  5. LOSEC                              /00661201/ [Concomitant]
     Indication: GASTROOESOPHAGEAL REFLUX PROPHYLAXIS
     Dosage: UNK
     Dates: start: 20090713
  6. SALOSPIR                           /00002701/ [Concomitant]
     Indication: THROMBOSIS PROPHYLAXIS
     Dosage: UNK
     Dates: start: 20090713
  7. LANTUS [Concomitant]
     Indication: DIABETES MELLITUS
     Dosage: UNK
     Dates: start: 20121010
  8. GLUCOPHAGE                         /00082701/ [Concomitant]
     Indication: DIABETES MELLITUS
     Dosage: UNK
     Dates: start: 2005

REACTIONS (3)
  - Septic shock [Fatal]
  - Cholecystitis acute [Not Recovered/Not Resolved]
  - Loss of consciousness [Unknown]
